FAERS Safety Report 5979856-7 (Version None)
Quarter: 2008Q4

REPORT INFORMATION
  Report Type: 
  Country: None (occurrence: None)
  Receive Date: 20081205
  Receipt Date: 20081201
  Transmission Date: 20090506
  Serious: Yes (Hospitalization)
  Sender: FDA-Public Use
  Company Number: US-BIOGENIDEC-2007BI022469

PATIENT
  Sex: Female

DRUGS (2)
  1. AVONEX [Suspect]
     Indication: MULTIPLE SCLEROSIS
     Route: 030
     Dates: start: 20031204, end: 20041201
  2. AVONEX [Suspect]
     Route: 030
     Dates: start: 20041201, end: 20070901

REACTIONS (2)
  - SKIN INFECTION [None]
  - URETERIC OBSTRUCTION [None]
